FAERS Safety Report 16100156 (Version 1)
Quarter: 2019Q1

REPORT INFORMATION
  Report Type: Report from Study
  Country: US (occurrence: US)
  Receive Date: 20190321
  Receipt Date: 20190321
  Transmission Date: 20190418
  Serious: Yes (Hospitalization)
  Sender: FDA-Public Use
  Company Number: US-PFIZER INC-2019108183

PATIENT
  Age: 74 Year
  Sex: Female

DRUGS (7)
  1. INOTUZUMAB OZOGAMICIN [Suspect]
     Active Substance: INOTUZUMAB OZOGAMICIN
     Indication: ACUTE LYMPHOCYTIC LEUKAEMIA
     Dosage: 0.3 MG/M2, CYCLIC (OVER 1 HOUR ON DAY 3)
     Route: 042
     Dates: start: 20190131
  2. VINCRISTINE SULFATE. [Suspect]
     Active Substance: VINCRISTINE SULFATE
     Indication: ACUTE LYMPHOCYTIC LEUKAEMIA
     Dosage: 2 MG, CYCLIC (DAY 1 AND DAY 8)
     Route: 042
  3. MESNA. [Suspect]
     Active Substance: MESNA
     Indication: ACUTE LYMPHOCYTIC LEUKAEMIA
     Dosage: 300 MG/M2, CYCLIC (DAILY OVER 24 HOURS FOR 3 DAYS ON DAYS 1-3)
     Route: 042
  4. PEGFILGRASTIM [Suspect]
     Active Substance: PEGFILGRASTIM
     Indication: ACUTE LYMPHOCYTIC LEUKAEMIA
     Dosage: 6 MG, CYCLIC (ON DAY 4 UNTIL RECOVERY OF GRANULOCYTE COUNT)
     Route: 058
  5. RITUXIMAB. [Suspect]
     Active Substance: RITUXIMAB
     Indication: ACUTE LYMPHOCYTIC LEUKAEMIA
     Dosage: 375 MG/M2, CYCLIC (ON DAY 2 AND DAY 8 - CYCLES 1 AND 3 ONLY)
     Route: 042
  6. DEXAMETHASONE. [Suspect]
     Active Substance: DEXAMETHASONE
     Indication: ACUTE LYMPHOCYTIC LEUKAEMIA
     Dosage: 20 MG, CYCLIC (DAILY FOR 4 DAYS ON DAYS 1-4 AND DAYS 11-14)
     Route: 042
  7. CYCLOPHOSPHAMIDE. [Suspect]
     Active Substance: CYCLOPHOSPHAMIDE
     Indication: ACUTE LYMPHOCYTIC LEUKAEMIA
     Dosage: 150 MG/M2, CYCLIC (OVER 3 HOURS TWICE A DAY ON DAYS 1-3)
     Route: 042

REACTIONS (2)
  - Hyperglycaemia [Recovered/Resolved]
  - Sepsis [Not Recovered/Not Resolved]

NARRATIVE: CASE EVENT DATE: 20190212
